FAERS Safety Report 4597762-X (Version None)
Quarter: 2005Q1

REPORT INFORMATION
  Report Type: 
  Country: None (occurrence: None)
  Receive Date: 20050125
  Receipt Date: 20040831
  Transmission Date: 20050727
  Serious: No
  Sender: FDA-Public Use
  Company Number: USA040876967

PATIENT
  Age: 76 Year
  Sex: Female
  Weight: 41 kg

DRUGS (5)
  1. EVISTA [Suspect]
     Dates: start: 20010101
  2. FORTEO [Suspect]
  3. NORVASC [Concomitant]
  4. PREDNISONE [Concomitant]
  5. NEXIUM [Concomitant]

REACTIONS (22)
  - ABDOMINAL PAIN [None]
  - ACTIVITIES OF DAILY LIVING IMPAIRED [None]
  - ADVERSE DRUG REACTION [None]
  - BODY HEIGHT DECREASED [None]
  - BREAST PAIN [None]
  - CATARACT [None]
  - DIFFICULTY IN WALKING [None]
  - DIZZINESS [None]
  - FALL [None]
  - GASTRITIS [None]
  - HEADACHE [None]
  - HIATUS HERNIA [None]
  - INFLUENZA [None]
  - IRRITABLE BOWEL SYNDROME [None]
  - NAUSEA [None]
  - NOCTURIA [None]
  - OEDEMA PERIPHERAL [None]
  - OSTEOARTHRITIS [None]
  - PAIN [None]
  - RASH [None]
  - SPINAL FRACTURE [None]
  - TEMPORAL ARTERITIS [None]
